FAERS Safety Report 10977919 (Version 1)
Quarter: 2015Q2

REPORT INFORMATION
  Report Type: Spontaneous
  Country: US (occurrence: US)
  Receive Date: 20150402
  Receipt Date: 20150402
  Transmission Date: 20150821
  Serious: Yes (Other)
  Sender: FDA-Public Use
  Company Number: US-AMGEN-USASP2015030381

PATIENT

DRUGS (3)
  1. ENBREL [Suspect]
     Active Substance: ETANERCEPT
     Indication: PRODUCT USED FOR UNKNOWN INDICATION
     Dosage: UNK
     Route: 065
  2. HUMIRA [Concomitant]
     Active Substance: ADALIMUMAB
     Dosage: UNK
  3. INULIN [Concomitant]
     Active Substance: INULIN
     Dosage: UNK

REACTIONS (8)
  - Food intolerance [Unknown]
  - Cow^s milk intolerance [Unknown]
  - Ankylosing spondylitis [Unknown]
  - Therapeutic response decreased [Unknown]
  - Gastrointestinal disorder [Unknown]
  - Iritis [Unknown]
  - Pain [Unknown]
  - Laboratory test abnormal [Unknown]
